FAERS Safety Report 21842658 (Version 1)
Quarter: 2023Q1

REPORT INFORMATION
  Report Type: Spontaneous
  Country: US (occurrence: None)
  Receive Date: 20230109
  Receipt Date: 20230109
  Transmission Date: 20230418
  Serious: No
  Sender: FDA-Public Use
  Company Number: None

PATIENT
  Age: 82 Year
  Sex: Female
  Weight: 62.14 kg

DRUGS (7)
  1. IBRANCE [Suspect]
     Active Substance: PALBOCICLIB
     Indication: Metastases to bone
     Dosage: FREQUENCY : DAILY;?
     Route: 048
     Dates: start: 202211
  2. AMLODIPINE [Concomitant]
     Active Substance: AMLODIPINE BESYLATE
  3. AMIODARONE [Concomitant]
     Active Substance: AMIODARONE
  4. BREO ELLIPTA [Concomitant]
     Active Substance: FLUTICASONE FUROATE\VILANTEROL TRIFENATATE
  5. CatapresTTS-3 [Concomitant]
  6. CELECOXIB [Concomitant]
     Active Substance: CELECOXIB
  7. DOCUSATE [Concomitant]

REACTIONS (1)
  - Influenza [None]

NARRATIVE: CASE EVENT DATE: 20230108
